FAERS Safety Report 6525069-X (Version None)
Quarter: 2010Q1

REPORT INFORMATION
  Report Type: 
  Country: None (occurrence: None)
  Receive Date: 20100104
  Receipt Date: 20091228
  Transmission Date: 20100710
  Serious: Yes (Hospitalization)
  Sender: FDA-Public Use
  Company Number: FR-SANOFI-AVENTIS-2009SA011347

PATIENT
  Age: 81 Year
  Sex: Female

DRUGS (9)
  1. LOVENOX [Suspect]
     Indication: PULMONARY EMBOLISM
     Route: 058
     Dates: start: 20091112, end: 20091118
  2. LASILIX [Suspect]
     Route: 048
     Dates: start: 20091014
  3. AMOXICILLIN AND CLAVULANATE POTASSIUM [Suspect]
     Indication: URINARY TRACT INFECTION
     Route: 048
     Dates: start: 20091109, end: 20091115
  4. ATHYMIL [Suspect]
     Indication: DEPRESSION
     Route: 048
     Dates: start: 19910101, end: 20091118
  5. MODOPAR [Concomitant]
     Route: 048
     Dates: start: 19910101, end: 20091118
  6. RULID [Concomitant]
     Indication: DRUG USE FOR UNKNOWN INDICATION
     Route: 048
     Dates: start: 20091112
  7. PREVISCAN [Concomitant]
     Indication: PULMONARY EMBOLISM
     Route: 048
     Dates: start: 20091112
  8. ESOMEPRAZOLE SODIUM (NEXIUM) [Concomitant]
     Indication: DRUG USE FOR UNKNOWN INDICATION
     Route: 048
     Dates: end: 20091116
  9. CORGARD [Concomitant]
     Indication: DRUG USE FOR UNKNOWN INDICATION
     Route: 048
     Dates: start: 20091014

REACTIONS (1)
  - AGRANULOCYTOSIS [None]
